FAERS Safety Report 21679713 (Version 2)
Quarter: 2025Q2

REPORT INFORMATION
  Report Type: Spontaneous
  Country: US (occurrence: US)
  Receive Date: 20221205
  Receipt Date: 20250516
  Transmission Date: 20250716
  Serious: No
  Sender: COHERUS
  Company Number: US-COHERUS BIOSCIENCES,INC-2022-COH-US000015

PATIENT

DRUGS (5)
  1. UDENYCA [Suspect]
     Active Substance: PEGFILGRASTIM-CBQV
     Indication: Infection prophylaxis
     Route: 058
     Dates: start: 20220104, end: 20220104
  2. UDENYCA [Suspect]
     Active Substance: PEGFILGRASTIM-CBQV
     Route: 058
     Dates: start: 20220118, end: 20220118
  3. UDENYCA [Suspect]
     Active Substance: PEGFILGRASTIM-CBQV
     Route: 058
     Dates: start: 20220412, end: 20220412
  4. NPLATE [Concomitant]
     Active Substance: ROMIPLOSTIM
     Dates: start: 202112
  5. TRUXIMA [Concomitant]
     Active Substance: RITUXIMAB-ABBS
     Dates: start: 202203

REACTIONS (1)
  - Intentional dose omission [Not Recovered/Not Resolved]

NARRATIVE: CASE EVENT DATE: 20220426
